FAERS Safety Report 6346154-1 (Version None)
Quarter: 2009Q3

REPORT INFORMATION
  Report Type: 
  Country: None (occurrence: None)
  Receive Date: 20090909
  Receipt Date: 20090901
  Transmission Date: 20100115
  Serious: Yes (Hospitalization)
  Sender: FDA-Public Use
  Company Number: US-TEVA-208026USA

PATIENT
  Sex: Male

DRUGS (1)
  1. AMPHETAMINES [Suspect]
     Route: 048

REACTIONS (5)
  - CONSTIPATION [None]
  - DIARRHOEA [None]
  - DRY MOUTH [None]
  - GASTRITIS [None]
  - NAUSEA [None]
